FAERS Safety Report 5340567-2 (Version None)
Quarter: 2007Q2

REPORT INFORMATION
  Report Type: 
  Country: None (occurrence: None)
  Receive Date: 20070405
  Receipt Date: 20070129
  Transmission Date: 20071010
  Serious: No
  Sender: FDA-Public Use
  Company Number: US200701005869

PATIENT
  Age: 22 Year
  Sex: Female

DRUGS (4)
  1. CYMBALTA [Suspect]
     Indication: MIGRAINE
     Dosage: 30 MG, DAILY (1/D)
     Dates: start: 20061001
  2. LORTAB [Concomitant]
  3. PHENERGAN [Concomitant]
  4. PREDNISONE TAB [Concomitant]

REACTIONS (4)
  - DYSPNOEA [None]
  - FEELING ABNORMAL [None]
  - MUSCULOSKELETAL CHEST PAIN [None]
  - NAUSEA [None]
